FAERS Safety Report 12709311 (Version 2)
Quarter: 2016Q4

REPORT INFORMATION
  Report Type: Spontaneous
  Country: FR (occurrence: FR)
  Receive Date: 20160901
  Receipt Date: 20161109
  Transmission Date: 20170207
  Serious: Yes (Hospitalization, Other)
  Sender: FDA-Public Use
  Company Number: PHHY2016FR118420

PATIENT
  Sex: Female
  Weight: 120 kg

DRUGS (5)
  1. NOCTAMIDE [Concomitant]
     Active Substance: LORMETAZEPAM
     Indication: PRODUCT USED FOR UNKNOWN INDICATION
     Route: 065
  2. FEMARA [Suspect]
     Active Substance: LETROZOLE
     Indication: BREAST CANCER
     Dosage: 1 DF, QD
     Route: 048
     Dates: start: 20160101, end: 20160229
  3. SERTLINE [Concomitant]
     Indication: DEPRESSION
     Route: 065
  4. VALIUM [Concomitant]
     Active Substance: DIAZEPAM
     Indication: PRODUCT USED FOR UNKNOWN INDICATION
     Route: 065
  5. ANASTROZOLE. [Suspect]
     Active Substance: ANASTROZOLE
     Indication: BREAST CANCER
     Dosage: 1 DF, QD
     Route: 048
     Dates: start: 20151120, end: 20151220

REACTIONS (18)
  - Asphyxia [Unknown]
  - Gait disturbance [Recovering/Resolving]
  - Depression [Unknown]
  - Adrenal disorder [Unknown]
  - Hypophysitis [Unknown]
  - Nausea [Unknown]
  - Insomnia [Unknown]
  - Hypothalamo-pituitary disorder [Unknown]
  - Full blood count decreased [Unknown]
  - Food craving [Unknown]
  - Nervous system disorder [Unknown]
  - Hypoglycaemia [Unknown]
  - Endocrine disorder [Unknown]
  - Drug ineffective [Unknown]
  - Weight increased [Unknown]
  - Abdominal pain [Unknown]
  - Fatigue [Unknown]
  - Dyspnoea [Unknown]
